FAERS Safety Report 5927339-2 (Version None)
Quarter: 2008Q4

REPORT INFORMATION
  Report Type: 
  Country: None (occurrence: None)
  Receive Date: 20081021
  Receipt Date: 20081011
  Transmission Date: 20090506
  Serious: Yes (Other)
  Sender: FDA-Public Use
  Company Number: CHPA2008US17550

PATIENT
  Sex: Female

DRUGS (1)
  1. MAALOX ANTIACID/ANTIGAS MAX STR MULTI SYMPT (NCH)(MAGNESIUM HYDROXIDE, [Suspect]
     Indication: DYSPEPSIA
     Dosage: 3 TSP, TID, ORAL
     Route: 048
     Dates: start: 20080901

REACTIONS (4)
  - CHOLECYSTECTOMY [None]
  - FAECES PALE [None]
  - INTENTIONAL DRUG MISUSE [None]
  - SELF-MEDICATION [None]
